APPROVED DRUG PRODUCT: PANTOPRAZOLE SODIUM
Active Ingredient: PANTOPRAZOLE SODIUM
Strength: EQ 20MG BASE
Dosage Form/Route: TABLET, DELAYED RELEASE;ORAL
Application: A200794 | Product #001
Applicant: SUN PHARMACEUTICAL INDUSTRIES LTD
Approved: May 2, 2012 | RLD: No | RS: No | Type: DISCN